FAERS Safety Report 10988960 (Version 5)
Quarter: 2015Q2

REPORT INFORMATION
  Report Type: Spontaneous
  Country: GB (occurrence: GB)
  Receive Date: 20150405
  Receipt Date: 20150417
  Transmission Date: 20150821
  Serious: Yes (Other)
  Sender: FDA-Public Use
  Company Number: GB-WATSON-2015-07066

PATIENT
  Sex: Female

DRUGS (3)
  1. ARCOXIA [Suspect]
     Active Substance: ETORICOXIB
     Indication: PRODUCT USED FOR UNKNOWN INDICATION
     Dosage: UNK; DOSE AND FREQUENCY: UNKNOWN OR MORE THAN ONE (DOSAGE FORM UNSPECIFIED) PER DAY
     Route: 048
  2. RAMIPRIL (UNKNOWN) [Suspect]
     Active Substance: RAMIPRIL
     Indication: PRODUCT USED FOR UNKNOWN INDICATION
     Dosage: UNK
     Route: 065
  3. CLOPIDOGREL BISULFATE (UNKNOWN) [Suspect]
     Active Substance: CLOPIDOGREL BISULFATE
     Indication: HYPERTENSION
     Dosage: UNK
     Route: 065

REACTIONS (5)
  - Hypertension [Not Recovered/Not Resolved]
  - Feeding disorder [Unknown]
  - Cough [Unknown]
  - Mouth ulceration [Unknown]
  - Transient ischaemic attack [Unknown]
